FAERS Safety Report 5446381-1 (Version None)
Quarter: 2007Q3

REPORT INFORMATION
  Report Type: 
  Country: None (occurrence: None)
  Receive Date: 20070907
  Receipt Date: 20070829
  Transmission Date: 20080115
  Serious: Yes (Hospitalization)
  Sender: FDA-Public Use
  Company Number: B0486032A

PATIENT
  Age: 79 Year
  Sex: Female

DRUGS (9)
  1. AUGMENTIN '125' [Suspect]
     Indication: DYSPNOEA
     Dosage: 1G THREE TIMES PER DAY
     Route: 065
     Dates: start: 20070720
  2. KARDEGIC [Suspect]
     Dosage: 75MG PER DAY
     Route: 065
  3. PREVISCAN [Suspect]
     Dosage: 1.25TAB PER DAY
     Route: 048
  4. PAROXETINE HCL [Concomitant]
     Route: 065
  5. FLECAINIDE ACETATE [Concomitant]
     Route: 065
  6. ISOPTIN [Concomitant]
     Route: 065
  7. PERINDOPRIL ERBUMINE [Concomitant]
     Route: 065
  8. BRICANYL [Concomitant]
     Route: 065
  9. ATROVENT [Concomitant]
     Route: 065

REACTIONS (7)
  - DRUG INTERACTION [None]
  - DUODENAL ULCER [None]
  - HAEMORRHAGIC ANAEMIA [None]
  - INTERNATIONAL NORMALISED RATIO INCREASED [None]
  - PROTHROMBIN LEVEL DECREASED [None]
  - SMALL INTESTINAL HAEMORRHAGE [None]
  - THROMBOSIS [None]
